FAERS Safety Report 11279192 (Version 2)
Quarter: 2015Q4

REPORT INFORMATION
  Report Type: Spontaneous
  Country: AT (occurrence: AT)
  Receive Date: 20150717
  Receipt Date: 20151026
  Transmission Date: 20160304
  Serious: Yes (Hospitalization)
  Sender: FDA-Public Use
  Company Number: AT-JNJFOC-20150707669

PATIENT
  Age: 70 Year
  Sex: Male
  Weight: 73.5 kg

DRUGS (3)
  1. SYLVANT [Suspect]
     Active Substance: SILTUXIMAB
     Indication: CASTLEMAN^S DISEASE
     Route: 065
     Dates: start: 201504
  2. INH [Suspect]
     Active Substance: ISONIAZID
     Indication: LATENT TUBERCULOSIS
     Route: 048
  3. LISINOPRIL. [Concomitant]
     Active Substance: LISINOPRIL
     Route: 065

REACTIONS (17)
  - Hypermetropia [Unknown]
  - Pleurisy [Unknown]
  - Hypertension [Unknown]
  - Spinal cord operation [Unknown]
  - Retinal anomaly congenital [Unknown]
  - Carotid arteriosclerosis [Unknown]
  - Cataract [Unknown]
  - Renal cyst [Unknown]
  - Hypercholesterolaemia [Unknown]
  - Retinopathy hypertensive [Unknown]
  - Dyspnoea exertional [Unknown]
  - Renal failure [Unknown]
  - Optic ischaemic neuropathy [Unknown]
  - Astigmatism [Unknown]
  - Night sweats [Recovered/Resolved]
  - Sjogren^s syndrome [Unknown]
  - Pruritus [Recovering/Resolving]

NARRATIVE: CASE EVENT DATE: 201504
